FAERS Safety Report 10148935 (Version 2)
Quarter: 2014Q2

REPORT INFORMATION
  Report Type: Report from Study
  Country: US (occurrence: US)
  Receive Date: 20140502
  Receipt Date: 20140523
  Transmission Date: 20141212
  Serious: Yes (Hospitalization)
  Sender: FDA-Public Use
  Company Number: US-BIOGENIDEC-2014BI040664

PATIENT
  Age: 61 Year
  Sex: Male
  Weight: 73 kg

DRUGS (8)
  1. AVONEX [Suspect]
     Indication: MULTIPLE SCLEROSIS
     Route: 030
     Dates: start: 20011203, end: 2013
  2. AVONEX [Suspect]
     Indication: MULTIPLE SCLEROSIS
     Route: 030
  3. EPI PEN [Concomitant]
  4. XANAX [Concomitant]
     Route: 048
  5. BUSPIRONE HCL [Concomitant]
     Route: 048
  6. SERTRALINE HCL [Concomitant]
     Route: 048
  7. OMEPRAZOLE [Concomitant]
     Route: 048
  8. SOLU-MEDROL [Concomitant]
     Route: 042
     Dates: start: 20090911, end: 20120917

REACTIONS (4)
  - Oropharyngeal squamous cell carcinoma [Recovered/Resolved]
  - Weight increased [Recovered/Resolved]
  - Pharynx radiation injury [Recovered/Resolved]
  - Malaise [Recovered/Resolved]
